FAERS Safety Report 9595340 (Version 1)
Quarter: 2013Q4

REPORT INFORMATION
  Report Type: Spontaneous
  Country: US (occurrence: US)
  Receive Date: 20131004
  Receipt Date: 20131004
  Transmission Date: 20140711
  Serious: No
  Sender: FDA-Public Use
  Company Number: US-PFIZER INC-2013279675

PATIENT
  Age: 81 Year
  Sex: Male
  Weight: 83.9 kg

DRUGS (1)
  1. SUTENT [Suspect]
     Indication: RENAL NEOPLASM
     Dosage: 50 MG, 1X/DAY
     Dates: start: 201309

REACTIONS (1)
  - Gingival ulceration [Not Recovered/Not Resolved]
